FAERS Safety Report 10418250 (Version 1)
Quarter: 2014Q3

REPORT INFORMATION
  Report Type: Spontaneous
  Country: DE (occurrence: DE)
  Receive Date: 20140829
  Receipt Date: 20140829
  Transmission Date: 20150326
  Serious: Yes (Other)
  Sender: FDA-Public Use
  Company Number: DE-GE HEALTHCARE MEDICAL DIAGNOSTICS-OSCN-PR-1408L-0136

PATIENT
  Age: 58 Year
  Sex: Male

DRUGS (3)
  1. OMNISCAN [Suspect]
     Active Substance: GADODIAMIDE
     Indication: DIAGNOSTIC PROCEDURE
  2. OMNISCAN [Suspect]
     Active Substance: GADODIAMIDE
     Indication: PRODUCT USED FOR UNKNOWN INDICATION
     Dosage: DOSE NOT REPORTED
     Route: 065
     Dates: start: 200602, end: 200604
  3. MAGNEVIST [Suspect]
     Active Substance: GADOPENTETATE DIMEGLUMINE
     Indication: PRODUCT USED FOR UNKNOWN INDICATION
     Dosage: DOSE NOT REPORTED
     Route: 065
     Dates: start: 200602, end: 200604

REACTIONS (1)
  - Nephrogenic systemic fibrosis [Recovering/Resolving]
